FAERS Safety Report 8108749-4 (Version None)
Quarter: 2012Q1

REPORT INFORMATION
  Report Type: 
  Country: None (occurrence: None)
  Receive Date: 20120202
  Receipt Date: 20120127
  Transmission Date: 20120608
  Serious: Yes (Death, Other)
  Sender: FDA-Public Use
  Company Number: PHHY2012US007787

PATIENT
  Sex: Male

DRUGS (7)
  1. AMIODARONE HCL [Suspect]
     Route: 064
  2. MAGNESIUM [Suspect]
     Route: 064
  3. METOPROLOL [Suspect]
     Route: 064
  4. CILOSTAZOL [Suspect]
     Route: 064
  5. ISOPROTERENOL HYDROCHLORIDE [Suspect]
     Route: 064
  6. ESMOLOL HCL [Suspect]
     Route: 064
  7. QUINIDINE HCL [Suspect]
     Route: 064

REACTIONS (7)
  - VENTRICULAR EXTRASYSTOLES [None]
  - HYPOTONIA [None]
  - CONTUSION [None]
  - FOETAL EXPOSURE DURING PREGNANCY [None]
  - APNOEA [None]
  - PREMATURE BABY [None]
  - SUDDEN CARDIAC DEATH [None]
